FAERS Safety Report 5797839-7 (Version None)
Quarter: 2008Q3

REPORT INFORMATION
  Report Type: 
  Country: None (occurrence: None)
  Receive Date: 20080702
  Receipt Date: 20080626
  Transmission Date: 20090109
  Serious: Yes (Death, Hospitalization)
  Sender: FDA-Public Use
  Company Number: BE-JNJFOC-20070701160

PATIENT
  Sex: Female
  Weight: 38 kg

DRUGS (3)
  1. RISPERDAL [Suspect]
     Indication: DRUG USE FOR UNKNOWN INDICATION
     Route: 048
  2. REMERGON [Suspect]
     Indication: DRUG USE FOR UNKNOWN INDICATION
  3. AMLOR [Concomitant]
     Indication: HYPERTENSION

REACTIONS (5)
  - BLOOD GLUCOSE DECREASED [None]
  - HYPOTHERMIA [None]
  - OVERDOSE [None]
  - OXYGEN SATURATION DECREASED [None]
  - PULMONARY EMBOLISM [None]
